FAERS Safety Report 8500446-6 (Version None)
Quarter: 2012Q3

REPORT INFORMATION
  Report Type: 
  Country: None (occurrence: None)
  Receive Date: 20120710
  Receipt Date: 20120702
  Transmission Date: 20120928
  Serious: Yes (Hospitalization)
  Sender: FDA-Public Use
  Company Number: JP-GLAXOSMITHKLINE-B0803861A

PATIENT
  Sex: Female
  Weight: 41 kg

DRUGS (3)
  1. VITAMIN B12 [Concomitant]
     Dosage: 3IUAX PER DAY
     Route: 048
     Dates: start: 20120509
  2. ERYTHROMYCIN [Concomitant]
     Indication: ATYPICAL MYCOBACTERIAL INFECTION
     Dosage: 400MG PER DAY
     Route: 048
     Dates: start: 20100101
  3. VALTREX [Suspect]
     Indication: HERPES ZOSTER
     Dosage: 3000MG PER DAY
     Route: 048
     Dates: start: 20120509, end: 20120512

REACTIONS (6)
  - ALTERED STATE OF CONSCIOUSNESS [None]
  - UNRESPONSIVE TO STIMULI [None]
  - PYREXIA [None]
  - MENTAL IMPAIRMENT [None]
  - C-REACTIVE PROTEIN INCREASED [None]
  - WHITE BLOOD CELL COUNT INCREASED [None]
